FAERS Safety Report 23873418 (Version 10)
Quarter: 2024Q3

REPORT INFORMATION
  Report Type: Spontaneous
  Country: US (occurrence: US)
  Receive Date: 20240520
  Receipt Date: 20240924
  Transmission Date: 20241017
  Serious: No
  Sender: PFIZER
  Company Number: US-PFIZER INC-202400108842

PATIENT
  Age: 73 Year
  Sex: Male
  Weight: 102.51 kg

DRUGS (2)
  1. GENOTROPIN [Suspect]
     Active Substance: SOMATROPIN
     Indication: Hypopituitarism
     Dosage: 0.4 MG, 7 DAYS PER WEEK
     Route: 058
     Dates: start: 202201
  2. GENOTROPIN [Suspect]
     Active Substance: SOMATROPIN
     Indication: Growth hormone deficiency
     Dosage: 0.4 MG, 7 DAYS PER WEEK
     Route: 058

REACTIONS (3)
  - Expired device used [Unknown]
  - Device placement issue [Unknown]
  - Device deposit issue [Unknown]

NARRATIVE: CASE EVENT DATE: 20240501
